FAERS Safety Report 6629338-4 (Version None)
Quarter: 2010Q1

REPORT INFORMATION
  Report Type: 
  Country: None (occurrence: None)
  Receive Date: 20100309
  Receipt Date: 20100301
  Transmission Date: 20100710
  Serious: Yes (Hospitalization)
  Sender: FDA-Public Use
  Company Number: R0006924A

PATIENT
  Age: 82 Year
  Sex: Female

DRUGS (5)
  1. ASPIRIN + CAFFEINE + SALICYLAMIDE (FORMULATION UNKNOWN) (ASPIRIN+CAFFE [Suspect]
     Dosage: ORAL
     Route: 048
     Dates: end: 20090925
  2. BLNDED VACINE TRIAL MED INJECTION [Suspect]
     Route: 030
     Dates: start: 20081009, end: 20081009
  3. ASPIRIN [Suspect]
     Route: 048
     Dates: end: 20090925
  4. NAPROXEN SODIUM [Suspect]
     Dates: end: 20090925
  5. MELOXICAM [Suspect]
     Indication: DRUG USE FOR UNKNOWN INDICATION
     Route: 048
     Dates: end: 20090925

REACTIONS (5)
  - DIZZINESS [None]
  - FATIGUE [None]
  - GASTRIC ULCER HAEMORRHAGE [None]
  - HYPERHIDROSIS [None]
  - PEPTIC ULCER HAEMORRHAGE [None]
